FAERS Safety Report 9979377 (Version 1)
Quarter: 2014Q1

REPORT INFORMATION
  Report Type: Report from Study
  Country: US (occurrence: US)
  Receive Date: 20140306
  Receipt Date: 20140306
  Transmission Date: 20141002
  Serious: No
  Sender: FDA-Public Use
  Company Number: US-ABBVIE-13P-163-1170858-00

PATIENT
  Age: 42 Year
  Sex: Female
  Weight: 59.93 kg

DRUGS (7)
  1. HUMIRA [Suspect]
     Indication: CROHN^S DISEASE
     Dates: start: 201308, end: 20131105
  2. ZOFRAN [Concomitant]
     Indication: NAUSEA
  3. XANAX [Concomitant]
     Indication: ANXIETY
  4. TRAMADOL [Concomitant]
     Indication: PAIN
  5. NEXIUM [Concomitant]
     Indication: GASTROOESOPHAGEAL REFLUX DISEASE
  6. CYMBALTA [Concomitant]
     Indication: DEPRESSION
  7. SUCRALFATE [Concomitant]
     Indication: GASTRIC DISORDER

REACTIONS (2)
  - Joint swelling [Not Recovered/Not Resolved]
  - Hypersensitivity [Unknown]
